FAERS Safety Report 7678773-4 (Version None)
Quarter: 2011Q3

REPORT INFORMATION
  Report Type: 
  Country: None (occurrence: None)
  Receive Date: 20110811
  Receipt Date: 20110802
  Transmission Date: 20111222
  Serious: Yes (Other)
  Sender: FDA-Public Use
  Company Number: US-ASTRAZENECA-2011SE46343

PATIENT
  Age: 73 Year
  Sex: Female

DRUGS (1)
  1. CRESTOR [Suspect]
     Route: 048

REACTIONS (11)
  - GLAUCOMA [None]
  - LUNG CARCINOMA CELL TYPE UNSPECIFIED STAGE III [None]
  - BLOOD CHOLESTEROL INCREASED [None]
  - DEPRESSION [None]
  - HEART RATE IRREGULAR [None]
  - HYPERTENSION [None]
  - TENDONITIS [None]
  - DIABETES MELLITUS [None]
  - CHRONIC OBSTRUCTIVE PULMONARY DISEASE [None]
  - THYROID DISORDER [None]
  - ANXIETY [None]
